FAERS Safety Report 21568572 (Version 2)
Quarter: 2022Q4

REPORT INFORMATION
  Report Type: Report from Study
  Country: FR (occurrence: FR)
  Receive Date: 20221108
  Receipt Date: 20221117
  Transmission Date: 20230113
  Serious: Yes (Death, Hospitalization, Other)
  Sender: FDA-Public Use
  Company Number: FR-SA-SAC20221101001918

PATIENT
  Age: 87 Year
  Sex: Female
  Weight: 71 kg

DRUGS (39)
  1. DEXAMETHASONE [Suspect]
     Active Substance: DEXAMETHASONE
     Indication: Plasma cell myeloma refractory
     Dosage: 20 MG, QW
     Route: 065
     Dates: start: 20220106, end: 20220127
  2. DEXAMETHASONE [Suspect]
     Active Substance: DEXAMETHASONE
     Dosage: 10 MG, QW
     Route: 065
     Dates: start: 20220824, end: 20220914
  3. DEXAMETHASONE [Suspect]
     Active Substance: DEXAMETHASONE
     Dosage: 20 MG, QW
     Route: 065
     Dates: start: 20220324, end: 20220330
  4. DEXAMETHASONE [Suspect]
     Active Substance: DEXAMETHASONE
     Dosage: 20 MG, QW
     Route: 065
     Dates: start: 20211209, end: 20211230
  5. DEXAMETHASONE [Suspect]
     Active Substance: DEXAMETHASONE
     Dosage: 10MG, QW
     Route: 065
     Dates: start: 20210921, end: 20211006
  6. DEXAMETHASONE [Suspect]
     Active Substance: DEXAMETHASONE
     Dosage: 20 MG, QW
     Route: 065
     Dates: start: 20210203, end: 20210216
  7. ISATUXIMAB [Suspect]
     Active Substance: ISATUXIMAB
     Indication: Plasma cell myeloma
     Dosage: 10 MG/KG, BIW
     Route: 065
     Dates: start: 20220921, end: 20221005
  8. ISATUXIMAB [Suspect]
     Active Substance: ISATUXIMAB
     Indication: Plasma cell myeloma refractory
     Dosage: 10 MG/KG, BIW
     Route: 065
     Dates: start: 20220106, end: 20220120
  9. ISATUXIMAB [Suspect]
     Active Substance: ISATUXIMAB
     Dosage: 10 MG/KG, BIW
     Route: 065
     Dates: start: 20220824, end: 20220907
  10. ISATUXIMAB [Suspect]
     Active Substance: ISATUXIMAB
     Dosage: 10 MG/KG, BIW
     Route: 065
     Dates: start: 20220203, end: 20220216
  11. ISATUXIMAB [Suspect]
     Active Substance: ISATUXIMAB
     Dosage: 10 MG/KG, BIW
     Route: 065
     Dates: start: 20220324, end: 20220330
  12. ISATUXIMAB [Suspect]
     Active Substance: ISATUXIMAB
     Dosage: 10 MG/KG, BIW
     Route: 065
     Dates: start: 20211209, end: 20211230
  13. POMALIDOMIDE [Suspect]
     Active Substance: POMALIDOMIDE
     Indication: Plasma cell myeloma
     Dosage: 2 MG, QD
     Route: 065
     Dates: start: 20220824, end: 20220913
  14. POMALIDOMIDE [Suspect]
     Active Substance: POMALIDOMIDE
     Indication: Plasma cell myeloma refractory
     Dosage: 4 MG, QD
     Route: 065
     Dates: start: 20211209, end: 20211229
  15. POMALIDOMIDE [Suspect]
     Active Substance: POMALIDOMIDE
     Dosage: 3 MG, QD
     Route: 065
     Dates: start: 20220106, end: 20220126
  16. POMALIDOMIDE [Suspect]
     Active Substance: POMALIDOMIDE
     Dosage: 3 MG, QD
     Route: 065
     Dates: start: 20220203, end: 20220216
  17. POMALIDOMIDE [Suspect]
     Active Substance: POMALIDOMIDE
     Dosage: 2 MG, QD
     Route: 065
     Dates: start: 20220324, end: 20220330
  18. POMALIDOMIDE [Suspect]
     Active Substance: POMALIDOMIDE
     Dosage: 2 MG, QD
     Route: 065
     Dates: start: 20220921, end: 20221006
  19. ACETAMINOPHEN [Concomitant]
     Active Substance: ACETAMINOPHEN
     Indication: Product used for unknown indication
     Dosage: EVERY CYCLE
     Dates: start: 20211209
  20. LERCANIDIPINE [Concomitant]
     Active Substance: LERCANIDIPINE
     Indication: Product used for unknown indication
     Dates: start: 20220217
  21. VALIUM [Concomitant]
     Active Substance: DIAZEPAM
     Indication: Insomnia
     Dates: start: 20221006
  22. FUROSEMIDE [Concomitant]
     Active Substance: FUROSEMIDE
     Indication: Hypertension
  23. VALGANCICLOVIR [Concomitant]
     Active Substance: VALGANCICLOVIR
     Indication: Product used for unknown indication
     Dates: start: 20220310
  24. VALACYCLOVIR HYDROCHLORIDE [Concomitant]
     Active Substance: VALACYCLOVIR HYDROCHLORIDE
     Indication: Viral infection
  25. CORDARONE [Concomitant]
     Active Substance: AMIODARONE HYDROCHLORIDE
     Indication: Atrial fibrillation
  26. OMEPRAZOLE [Concomitant]
     Active Substance: OMEPRAZOLE
     Indication: Gastrooesophageal reflux disease
     Dates: start: 20221006
  27. BACTRIM [Concomitant]
     Active Substance: SULFAMETHOXAZOLE\TRIMETHOPRIM
     Indication: Antiviral prophylaxis
     Dates: start: 20211209
  28. ZOPICLONE [Concomitant]
     Active Substance: ZOPICLONE
     Indication: Insomnia
  29. GAVISCONELL [Concomitant]
     Indication: Product used for unknown indication
     Dates: start: 20221006
  30. AMITRIPTYLINE HYDROCHLORIDE [Concomitant]
     Active Substance: AMITRIPTYLINE HYDROCHLORIDE
     Indication: Peripheral sensory neuropathy
     Dates: start: 20220816
  31. KARDEGIC [Concomitant]
     Active Substance: ASPIRIN DL-LYSINE
     Indication: Atrial fibrillation
     Dates: start: 20220422
  32. CHOLECALCIFEROL [Concomitant]
     Active Substance: CHOLECALCIFEROL
     Indication: Vitamin D deficiency
  33. NEURONTIN [Concomitant]
     Active Substance: GABAPENTIN
     Indication: Product used for unknown indication
     Dates: start: 20220426
  34. FAMOTIDINE [Concomitant]
     Active Substance: FAMOTIDINE
     Indication: Premedication
     Dates: start: 20211209
  35. PRIMPERAN [Concomitant]
     Active Substance: METOCLOPRAMIDE HYDROCHLORIDE
     Indication: Product used for unknown indication
     Dates: start: 20211223
  36. ALUMINUM OXIDE [Concomitant]
     Active Substance: ALUMINUM OXIDE
     Indication: Gastrooesophageal reflux disease
     Dates: start: 20211223
  37. ONDANSETRON [Concomitant]
     Active Substance: ONDANSETRON
     Indication: Product used for unknown indication
     Dates: start: 20220816
  38. ONDANSETRON [Concomitant]
     Active Substance: ONDANSETRON
     Dates: start: 20211223
  39. POLARAMINE [Concomitant]
     Active Substance: DEXCHLORPHENIRAMINE MALEATE
     Indication: Premedication
     Dates: start: 20211209

REACTIONS (1)
  - Cardiac failure [Fatal]

NARRATIVE: CASE EVENT DATE: 20221007
